FAERS Safety Report 18528083 (Version 4)
Quarter: 2021Q1

REPORT INFORMATION
  Report Type: Report from Study
  Country: CA (occurrence: CA)
  Receive Date: 20201120
  Receipt Date: 20210312
  Transmission Date: 20210419
  Serious: Yes (Hospitalization, Other)
  Sender: FDA-Public Use
  Company Number: CA-SHIRE-CA201926476

PATIENT
  Age: 62 Year
  Sex: Female
  Weight: 63.49 kg

DRUGS (62)
  1. TEDUGLUTIDE [Suspect]
     Active Substance: TEDUGLUTIDE
     Indication: SHORT-BOWEL SYNDROME
     Dosage: 3.75 MILLIGRAM, 1X/DAY:QD
     Route: 050
     Dates: start: 20190510
  2. TEDUGLUTIDE [Suspect]
     Active Substance: TEDUGLUTIDE
     Dosage: 3.2 MILLIGRAM, 1X/DAY:QD
     Route: 058
     Dates: start: 20190510
  3. TEDUGLUTIDE [Suspect]
     Active Substance: TEDUGLUTIDE
     Dosage: 3.2MG/0.32ML
     Route: 065
  4. TEDUGLUTIDE [Suspect]
     Active Substance: TEDUGLUTIDE
     Dosage: 3.17 MILLIGRAM, QD
     Route: 065
     Dates: start: 20190510
  5. TEDUGLUTIDE [Suspect]
     Active Substance: TEDUGLUTIDE
     Dosage: 3.36 MILLIGRAM, 1X/DAY:QD
     Route: 065
     Dates: start: 20200128
  6. TEDUGLUTIDE [Suspect]
     Active Substance: TEDUGLUTIDE
     Dosage: 3.36 MILLIGRAM, 1X/DAY:QD
     Route: 065
     Dates: start: 20200128
  7. PREVACID [Concomitant]
     Active Substance: LANSOPRAZOLE
     Dosage: UNK UNK, 1X/DAY:QD
     Route: 065
  8. CODEINE [Concomitant]
     Active Substance: CODEINE
     Dosage: 30 MILLIGRAM, 2X/DAY:BID
     Route: 048
  9. TEDUGLUTIDE [Suspect]
     Active Substance: TEDUGLUTIDE
     Indication: SHORT-BOWEL SYNDROME
     Dosage: 3.75 MILLIGRAM, 1X/DAY:QD
     Route: 050
     Dates: start: 20190510
  10. TEDUGLUTIDE [Suspect]
     Active Substance: TEDUGLUTIDE
     Indication: SHORT-BOWEL SYNDROME
     Dosage: 3.75 MILLIGRAM, 1X/DAY:QD
     Route: 050
     Dates: start: 20190510
  11. TEDUGLUTIDE [Suspect]
     Active Substance: TEDUGLUTIDE
     Dosage: 3.36 MILLIGRAM, 1X/DAY:QD
     Route: 065
     Dates: start: 20190510
  12. TEDUGLUTIDE [Suspect]
     Active Substance: TEDUGLUTIDE
     Dosage: 3.36 MILLIGRAM, 1X/DAY:QD
     Route: 065
     Dates: start: 20190510
  13. TEDUGLUTIDE [Suspect]
     Active Substance: TEDUGLUTIDE
     Dosage: 3.36 MILLIGRAM, 1X/DAY:QD
     Route: 065
     Dates: start: 20191025
  14. TEDUGLUTIDE [Suspect]
     Active Substance: TEDUGLUTIDE
     Dosage: 3.2MG/0.32ML
     Route: 065
  15. TEDUGLUTIDE [Suspect]
     Active Substance: TEDUGLUTIDE
     Dosage: 3.175 MILLIGRAM, QD
     Route: 065
  16. TEDUGLUTIDE [Suspect]
     Active Substance: TEDUGLUTIDE
     Dosage: 3.175 MILLIGRAM, QD
     Route: 065
  17. REMICADE [Concomitant]
     Active Substance: INFLIXIMAB
     Dosage: UNK, QD
     Route: 042
  18. TEDUGLUTIDE [Suspect]
     Active Substance: TEDUGLUTIDE
     Dosage: 3.36 MILLIGRAM, 1X/DAY:QD
     Route: 065
     Dates: start: 20190510
  19. TEDUGLUTIDE [Suspect]
     Active Substance: TEDUGLUTIDE
     Dosage: 3.36 MILLIGRAM, 1X/DAY:QD
     Route: 065
     Dates: start: 20190510
  20. TEDUGLUTIDE [Suspect]
     Active Substance: TEDUGLUTIDE
     Dosage: 3.36 MILLIGRAM, 1X/DAY:QD
     Route: 065
     Dates: start: 20191025
  21. TEDUGLUTIDE [Suspect]
     Active Substance: TEDUGLUTIDE
     Dosage: UNK
     Route: 065
  22. TEDUGLUTIDE [Suspect]
     Active Substance: TEDUGLUTIDE
     Dosage: UNK
     Route: 065
  23. TEDUGLUTIDE [Suspect]
     Active Substance: TEDUGLUTIDE
     Dosage: 3.2 MILLIGRAM, 1X/DAY:QD
     Route: 058
     Dates: start: 20190510
  24. TEDUGLUTIDE [Suspect]
     Active Substance: TEDUGLUTIDE
     Dosage: 3.175 MILLIGRAM, QD
     Route: 065
  25. TEDUGLUTIDE [Suspect]
     Active Substance: TEDUGLUTIDE
     Dosage: 3.36 MILLIGRAM, 1X/DAY:QD
     Route: 065
     Dates: start: 20200128
  26. CITALOPRAM [Concomitant]
     Active Substance: CITALOPRAM HYDROBROMIDE
     Dosage: 1.5 DOSAGE FORM, 1X/DAY:QD
     Route: 065
  27. TRAZODONE [Concomitant]
     Active Substance: TRAZODONE HYDROCHLORIDE
     Dosage: 150 MILLIGRAM
     Route: 048
  28. TEDUGLUTIDE [Suspect]
     Active Substance: TEDUGLUTIDE
     Dosage: UNK
     Route: 065
  29. TEDUGLUTIDE [Suspect]
     Active Substance: TEDUGLUTIDE
     Dosage: 3.2 MILLIGRAM, 1X/DAY:QD
     Route: 058
     Dates: start: 20190510
  30. TEDUGLUTIDE [Suspect]
     Active Substance: TEDUGLUTIDE
     Dosage: 3.2MG/0.32ML
     Route: 065
  31. TEDUGLUTIDE [Suspect]
     Active Substance: TEDUGLUTIDE
     Dosage: 3.175 MILLIGRAM, QD
     Route: 065
  32. LEVOCARB [Concomitant]
     Active Substance: CARBIDOPA\LEVODOPA
     Dosage: 25 MILLIGRAM
     Route: 048
  33. WOMEN^S MULTIVITE [Concomitant]
     Dosage: 1 DOSAGE FORM, 2X/DAY:BID
     Route: 065
  34. WOMEN MULTI [Concomitant]
     Indication: PRODUCT USED FOR UNKNOWN INDICATION
  35. TEDUGLUTIDE [Suspect]
     Active Substance: TEDUGLUTIDE
     Dosage: 3.36 MILLIGRAM, 1X/DAY:QD
     Route: 065
     Dates: start: 20190510
  36. TEDUGLUTIDE [Suspect]
     Active Substance: TEDUGLUTIDE
     Dosage: 3.36 MILLIGRAM, 1X/DAY:QD
     Route: 065
     Dates: start: 20191025
  37. TEDUGLUTIDE [Suspect]
     Active Substance: TEDUGLUTIDE
     Dosage: 3.36 MILLIGRAM, 1X/DAY:QD
     Route: 065
     Dates: start: 20191025
  38. TEDUGLUTIDE [Suspect]
     Active Substance: TEDUGLUTIDE
     Dosage: 3.2 MILLIGRAM, 1X/DAY:QD
     Route: 058
     Dates: start: 20190510
  39. TEDUGLUTIDE [Suspect]
     Active Substance: TEDUGLUTIDE
     Dosage: 3.175 MILLIGRAM, 1X/WEEK
     Route: 065
     Dates: start: 20190510
  40. TEDUGLUTIDE [Suspect]
     Active Substance: TEDUGLUTIDE
     Dosage: 3.17 MILLIGRAM, QD
     Route: 065
     Dates: start: 20190510
  41. TPN [AMINO ACIDS NOS;CARBOHYDRATES NOS;MINERALS NOS;VITAMINS NOS] [Concomitant]
     Active Substance: AMINO ACIDS\CARBOHYDRATES\MINERALS\VITAMINS
     Dosage: UNK, PRN
     Route: 042
  42. NASAL SPRAY II [Concomitant]
     Indication: HEADACHE
  43. TEDUGLUTIDE [Suspect]
     Active Substance: TEDUGLUTIDE
     Dosage: 3.36 MILLIGRAM, 1X/DAY:QD
     Route: 065
     Dates: start: 20190510
  44. TEDUGLUTIDE [Suspect]
     Active Substance: TEDUGLUTIDE
     Dosage: 3.36 MILLIGRAM, 1X/DAY:QD
     Route: 065
     Dates: start: 20190510
  45. TEDUGLUTIDE [Suspect]
     Active Substance: TEDUGLUTIDE
     Dosage: 3.36 MILLIGRAM, 1X/DAY:QD
     Route: 065
     Dates: start: 20190510
  46. TEDUGLUTIDE [Suspect]
     Active Substance: TEDUGLUTIDE
     Dosage: 3.175 MILLIGRAM, 1X/WEEK
     Route: 065
     Dates: start: 20190510
  47. TEDUGLUTIDE [Suspect]
     Active Substance: TEDUGLUTIDE
     Dosage: 3.175 MILLIGRAM, 1X/WEEK
     Route: 065
     Dates: start: 20190510
  48. TEDUGLUTIDE [Suspect]
     Active Substance: TEDUGLUTIDE
     Dosage: 3.36 MILLIGRAM, 1X/DAY:QD
     Route: 065
     Dates: start: 20200128
  49. ALLOPURINOL. [Concomitant]
     Active Substance: ALLOPURINOL
     Dosage: 200 MILLIGRAM
     Route: 048
  50. TEDUGLUTIDE [Suspect]
     Active Substance: TEDUGLUTIDE
     Indication: SHORT-BOWEL SYNDROME
     Dosage: 3.75 MILLIGRAM, 1X/DAY:QD
     Route: 050
     Dates: start: 20190510
  51. TEDUGLUTIDE [Suspect]
     Active Substance: TEDUGLUTIDE
     Dosage: 3.2MG/0.32ML
     Route: 065
  52. TEDUGLUTIDE [Suspect]
     Active Substance: TEDUGLUTIDE
     Dosage: 3.175 MILLIGRAM, 1X/WEEK
     Route: 065
     Dates: start: 20190510
  53. ROSUVASTATIN. [Concomitant]
     Active Substance: ROSUVASTATIN
     Dosage: 20 MILLIGRAM, 1X/DAY:QD
     Route: 065
  54. APO?FENO?MICRO [Concomitant]
     Active Substance: FENOFIBRATE
     Dosage: 200 UNK
     Route: 065
  55. CANDESARTAN. [Concomitant]
     Active Substance: CANDESARTAN
     Dosage: 8 MILLIGRAM, 1X/DAY:QD
     Route: 065
  56. TUMS [Concomitant]
     Active Substance: CALCIUM CARBONATE
     Route: 065
  57. NACK [Concomitant]
     Dosage: 1000 MILLILITER, 3/WEEK
     Route: 065
     Dates: start: 20200806
  58. TEDUGLUTIDE [Suspect]
     Active Substance: TEDUGLUTIDE
     Dosage: UNK
     Route: 065
  59. TEDUGLUTIDE [Suspect]
     Active Substance: TEDUGLUTIDE
     Dosage: 3.17 MILLIGRAM, QD
     Route: 065
     Dates: start: 20190510
  60. TEDUGLUTIDE [Suspect]
     Active Substance: TEDUGLUTIDE
     Dosage: 3.17 MILLIGRAM, QD
     Route: 065
     Dates: start: 20190510
  61. ZOPICLONE [Concomitant]
     Active Substance: ZOPICLONE
     Dosage: 7.5 MILLIGRAM
     Route: 048
  62. PANTOPRAZOLE [Concomitant]
     Active Substance: PANTOPRAZOLE
     Dosage: 40 MILLIGRAM, 2X/DAY:BID
     Route: 048

REACTIONS (28)
  - Muscle spasms [Unknown]
  - Biliary colic [Not Recovered/Not Resolved]
  - Fear of surgery [Unknown]
  - Pain [Not Recovered/Not Resolved]
  - Diarrhoea [Unknown]
  - Malaise [Unknown]
  - Infection [Unknown]
  - Wrong technique in product usage process [Unknown]
  - Cholelithiasis [Unknown]
  - Biliary obstruction [Not Recovered/Not Resolved]
  - Stoma complication [Not Recovered/Not Resolved]
  - Chest pain [Not Recovered/Not Resolved]
  - Off label use [Unknown]
  - Body temperature decreased [Not Recovered/Not Resolved]
  - Gallbladder disorder [Not Recovered/Not Resolved]
  - Weight decreased [Not Recovered/Not Resolved]
  - Stress [Unknown]
  - Gastrointestinal stoma output increased [Unknown]
  - Haemorrhoids [Unknown]
  - Dyspepsia [Recovered/Resolved]
  - Gastrointestinal disorder [Unknown]
  - Abdominal pain [Recovering/Resolving]
  - Gastrointestinal stoma complication [Not Recovered/Not Resolved]
  - Headache [Not Recovered/Not Resolved]
  - Vascular device infection [Not Recovered/Not Resolved]
  - Gastrointestinal stoma output decreased [Recovering/Resolving]
  - Lipase increased [Unknown]
  - Decreased appetite [Not Recovered/Not Resolved]

NARRATIVE: CASE EVENT DATE: 202001
